FAERS Safety Report 22010436 (Version 3)
Quarter: 2023Q2

REPORT INFORMATION
  Report Type: Spontaneous
  Country: CN (occurrence: CN)
  Receive Date: 20230220
  Receipt Date: 20230607
  Transmission Date: 20230722
  Serious: Yes (Death, Other)
  Sender: FDA-Public Use
  Company Number: CN-SUN PHARMACEUTICAL INDUSTRIES LTD-2023R1-379317

PATIENT
  Age: 64 Year
  Sex: Male

DRUGS (3)
  1. GEMCITABINE [Suspect]
     Active Substance: GEMCITABINE
     Indication: Mucoepidermoid carcinoma
     Dosage: UNK
     Route: 065
     Dates: start: 20200908
  2. OXALIPLATIN [Suspect]
     Active Substance: OXALIPLATIN
     Indication: Mucoepidermoid carcinoma
     Dosage: UNK
     Route: 065
     Dates: start: 20200908
  3. CAMRELIZUMAB [Suspect]
     Active Substance: CAMRELIZUMAB
     Indication: Mucoepidermoid carcinoma
     Dosage: UNK
     Route: 065

REACTIONS (5)
  - Reactive capillary endothelial proliferation [Unknown]
  - Leukopenia [Unknown]
  - Thrombocytopenia [Unknown]
  - Disease progression [Fatal]
  - Therapy cessation [Fatal]
